FAERS Safety Report 7521776-0 (Version None)
Quarter: 2011Q2

REPORT INFORMATION
  Report Type: 
  Country: None (occurrence: None)
  Receive Date: 20110603
  Receipt Date: 20110527
  Transmission Date: 20111010
  Serious: Yes (Death)
  Sender: FDA-Public Use
  Company Number: PHHY2011BR47748

PATIENT
  Sex: Female

DRUGS (3)
  1. EXELON [Suspect]
     Dosage: 9MG/5CM^2
     Route: 062
  2. CALCIUM SANDOZ [Suspect]
     Dosage: 1000 MG, UNK
     Route: 048
  3. BENEFIBER [Suspect]

REACTIONS (1)
  - DEATH [None]
